FAERS Safety Report 9868063 (Version 1)
Quarter: 2014Q1

REPORT INFORMATION
  Report Type: Spontaneous
  Country: US (occurrence: US)
  Receive Date: 20140204
  Receipt Date: 20140204
  Transmission Date: 20141002
  Serious: Yes (Hospitalization)
  Sender: FDA-Public Use
  Company Number: US-OTSUKA-US-2014-10209

PATIENT
  Age: 45 Year
  Sex: Male

DRUGS (5)
  1. ABILIFY MAINTENA [Suspect]
     Indication: SCHIZOPHRENIA
     Dosage: UNK
     Route: 030
  2. ABILIFY MAINTENA [Suspect]
     Indication: SCHIZOAFFECTIVE DISORDER
  3. ABILIFY MAINTENA [Suspect]
     Indication: BIPOLAR DISORDER
  4. TRILEPTAL [Concomitant]
     Indication: PRODUCT USED FOR UNKNOWN INDICATION
     Dosage: UNK
  5. LORAZEPAM [Concomitant]
     Indication: PRODUCT USED FOR UNKNOWN INDICATION
     Dosage: UNK, PRN

REACTIONS (1)
  - Cellulitis [Unknown]
